FAERS Safety Report 8229336-3 (Version None)
Quarter: 2012Q1

REPORT INFORMATION
  Report Type: 
  Country: None (occurrence: None)
  Receive Date: 20120322
  Receipt Date: 20120312
  Transmission Date: 20120608
  Serious: No
  Sender: FDA-Public Use
  Company Number: US-B.I. PHARMACEUTICALS,INC./RIDGEFIELD-2012-BP-04646BP

PATIENT
  Sex: Male

DRUGS (8)
  1. METOPROLOL SUCCINATE [Concomitant]
     Indication: HYPERTENSION
  2. NIACIN [Concomitant]
  3. SPIRIVA [Suspect]
     Dosage: 18 MCG
     Route: 055
     Dates: start: 20120305
  4. HYDROCHLOROTHIAZIDE [Concomitant]
     Indication: CARDIAC DISORDER
  5. ASPIRIN [Concomitant]
     Indication: CARDIAC DISORDER
     Dosage: 325 MG
     Route: 048
  6. LOSARTAN POTASSIUM [Concomitant]
     Indication: HYPERTENSION
  7. FISH OIL [Concomitant]
     Indication: SUPPLEMENTATION THERAPY
  8. GLUCOSAMINE [Concomitant]
     Indication: ARTHRITIS

REACTIONS (2)
  - OEDEMA PERIPHERAL [None]
  - PAIN IN EXTREMITY [None]
